FAERS Safety Report 20696241 (Version 1)
Quarter: 2022Q2

REPORT INFORMATION
  Report Type: Spontaneous
  Country: FR (occurrence: FR)
  Receive Date: 20220411
  Receipt Date: 20220411
  Transmission Date: 20220721
  Serious: Yes (Congenital Anomaly)
  Sender: FDA-Public Use
  Company Number: None

PATIENT
  Sex: Male
  Weight: 3.765 kg

DRUGS (4)
  1. NEXPLANON [Suspect]
     Active Substance: ETONOGESTREL
     Indication: Contraception
     Dosage: UNK, ALSO REPORTED AS IMPLANT FOR SUBCUTANEOUS USE
     Route: 064
     Dates: start: 20190927, end: 20191127
  2. KETOPROFEN [Suspect]
     Active Substance: KETOPROFEN
     Indication: Analgesic therapy
     Dosage: 100 MILLIGRAM, ONCE (1 TOTAL)
     Route: 064
     Dates: start: 20190927, end: 20190927
  3. MISOPROSTOL [Suspect]
     Active Substance: MISOPROSTOL
     Indication: Abortion induced
     Dosage: 2 DOSAGE FORM, ONCE (1 TOTAL)
     Route: 064
     Dates: start: 20190927, end: 20190927
  4. MIFEPRISTONE [Suspect]
     Active Substance: MIFEPRISTONE
     Indication: Abortion induced
     Dosage: 3 DOSAGE FORM, ONCE (1 TOTAL)
     Route: 064
     Dates: start: 20190925, end: 20190925

REACTIONS (3)
  - Cerebral ventricle dilatation [Not Recovered/Not Resolved]
  - Epilepsy congenital [Not Recovered/Not Resolved]
  - Psychomotor skills impaired [Not Recovered/Not Resolved]

NARRATIVE: CASE EVENT DATE: 20200428
